FAERS Safety Report 8500456-9 (Version None)
Quarter: 2012Q3

REPORT INFORMATION
  Report Type: 
  Country: None (occurrence: None)
  Receive Date: 20120710
  Receipt Date: 20120703
  Transmission Date: 20120928
  Serious: Yes (Other)
  Sender: FDA-Public Use
  Company Number: JP-GLAXOSMITHKLINE-B0812994A

PATIENT
  Age: 10 Year

DRUGS (3)
  1. LAMICTAL [Suspect]
     Indication: FRONTAL LOBE EPILEPSY
     Route: 048
  2. PHENOBARBITAL TAB [Concomitant]
     Indication: FRONTAL LOBE EPILEPSY
     Route: 048
  3. UNKNOWN [Concomitant]
     Route: 065

REACTIONS (2)
  - DYSCALCULIA [None]
  - REGRESSIVE BEHAVIOUR [None]
